FAERS Safety Report 25056528 (Version 2)
Quarter: 2025Q1

REPORT INFORMATION
  Report Type: Spontaneous
  Country: US (occurrence: US)
  Receive Date: 20250310
  Receipt Date: 20250319
  Transmission Date: 20250408
  Serious: Yes (Other)
  Sender: BAUSCH AND LOMB
  Company Number: US-BAUSCHBL-2025BNL003647

PATIENT
  Age: 71 Year
  Sex: Female
  Weight: 65.77 kg

DRUGS (1)
  1. XIIDRA [Suspect]
     Active Substance: LIFITEGRAST
     Indication: Dry eye
     Dosage: 1 DROP IN EACH EYE TWICE A DAY
     Route: 047
     Dates: start: 2023, end: 202502

REACTIONS (7)
  - Cataract operation [Recovered/Resolved]
  - Eye inflammation [Recovered/Resolved]
  - Eye pain [Recovered/Resolved]
  - Vision blurred [Recovered/Resolved]
  - Eye irritation [Not Recovered/Not Resolved]
  - Eye discharge [Not Recovered/Not Resolved]
  - Drug ineffective [Unknown]

NARRATIVE: CASE EVENT DATE: 20230101
